FAERS Safety Report 6370854-0 (Version None)
Quarter: 2009Q3

REPORT INFORMATION
  Report Type: 
  Country: None (occurrence: None)
  Receive Date: 20090923
  Receipt Date: 20070712
  Transmission Date: 20100115
  Serious: Yes (Other)
  Sender: FDA-Public Use
  Company Number: US-ASTRAZENECA-2006UW24639

PATIENT
  Age: 17022 Day
  Sex: Female
  Weight: 91.2 kg

DRUGS (14)
  1. SEROQUEL [Suspect]
     Indication: SCHIZOPHRENIA
     Route: 048
  2. PROTONIX [Concomitant]
     Dates: start: 20020424
  3. ZYPREXA [Concomitant]
     Dosage: 2.5-10 MG
     Route: 048
     Dates: start: 19981105
  4. HYDROCODONE BITARTRATE AND ACETAMINOPHEN [Concomitant]
     Dosage: 5/500 PRN AND DISPENSED
     Dates: start: 20020424
  5. NAPROXEN [Concomitant]
     Dosage: 550 MG DISPENSED
     Dates: start: 20030605
  6. OXYCODONE HCL AND ACETAMINOPHEN [Concomitant]
     Dosage: 7.5-500 DISPENSED
     Dates: start: 20030728
  7. ALTACE [Concomitant]
     Dosage: 10 MG DISPENSED
     Dates: start: 20040710
  8. ABILIFY [Concomitant]
     Dosage: 10 MG DISPENSED
     Dates: start: 20041116
  9. ACTOS [Concomitant]
     Dosage: 30 MG DISPENSED
     Dates: start: 20041227
  10. MONOPRIL [Concomitant]
     Route: 048
     Dates: start: 20020424
  11. CLONIDINE [Concomitant]
     Route: 048
     Dates: start: 20020424
  12. LASIX [Concomitant]
     Route: 048
     Dates: start: 20020424
  13. ADALAT CC [Concomitant]
     Dosage: 60 MG QD, 90 MG DISPENSED
     Route: 048
     Dates: start: 20020424
  14. LITHIUM [Concomitant]
     Dates: start: 19980905

REACTIONS (4)
  - DIABETES MELLITUS [None]
  - DIABETES MELLITUS INADEQUATE CONTROL [None]
  - HYPERGLYCAEMIA [None]
  - TYPE 2 DIABETES MELLITUS [None]
